FAERS Safety Report 11495106 (Version 1)
Quarter: 2015Q3

REPORT INFORMATION
  Report Type: Spontaneous
  Country: US (occurrence: US)
  Receive Date: 20150911
  Receipt Date: 20150911
  Transmission Date: 20151125
  Serious: No
  Sender: FDA-Public Use
  Company Number: US-ROCHE-1001013

PATIENT
  Sex: Female

DRUGS (2)
  1. PEGASYS [Suspect]
     Active Substance: PEGINTERFERON ALFA-2A
     Indication: HEPATITIS C
     Dosage: THERAPY LENGTH OF 24 WEEKS
     Route: 065
     Dates: start: 20110909
  2. SEROQUEL [Concomitant]
     Active Substance: QUETIAPINE FUMARATE
     Indication: DEPRESSION
     Route: 050

REACTIONS (6)
  - Decreased appetite [Unknown]
  - Rash [Unknown]
  - Nausea [Unknown]
  - Abdominal discomfort [Unknown]
  - Back pain [Unknown]
  - Haematochezia [Unknown]
